FAERS Safety Report 13740733 (Version 1)
Quarter: 2017Q3

REPORT INFORMATION
  Report Type: Spontaneous
  Country: US (occurrence: US)
  Receive Date: 20170710
  Receipt Date: 20170710
  Transmission Date: 20171127
  Serious: No
  Sender: FDA-Public Use
  Company Number: None

PATIENT
  Age: 85 Year
  Sex: Male
  Weight: 36 kg

DRUGS (1)
  1. INVANZ [Suspect]
     Active Substance: ERTAPENEM SODIUM
     Indication: CELLULITIS
     Dosage: ?          OTHER DOSE:GM;?
     Route: 041
     Dates: start: 20170519, end: 20170522

REACTIONS (2)
  - Somnolence [None]
  - Disorientation [None]

NARRATIVE: CASE EVENT DATE: 20170523
